FAERS Safety Report 25704999 (Version 2)
Quarter: 2025Q3

REPORT INFORMATION
  Report Type: Spontaneous
  Country: EU (occurrence: EU)
  Receive Date: 20250820
  Receipt Date: 20250911
  Transmission Date: 20251021
  Serious: Yes (Other)
  Sender: SUNOVION
  Company Number: None

PATIENT
  Age: 80 Year
  Sex: Male

DRUGS (4)
  1. ORGOVYX [Suspect]
     Active Substance: RELUGOLIX
     Indication: Prostate cancer
     Dosage: STRENGTH: 120 MG, 30 TABLETS BOTTLE (HDPE), 1 TABLET AT BREAKFAST
     Route: 048
     Dates: start: 20241230
  2. METFORMIN [Concomitant]
     Active Substance: METFORMIN HYDROCHLORIDE
     Dosage: STRENGTH: 850 MG, EFG, 50 TABLETS
     Route: 048
     Dates: start: 20120513
  3. SERETIDE [Concomitant]
     Active Substance: FLUTICASONE PROPIONATE\SALMETEROL XINAFOATE
     Dosage: STRENGTH: R 50 MCG/250 MCG/INHALATION, POWDER FOR INHALATION, 1 INHALER + 60 BLISTERS
     Dates: start: 2018
  4. SIMVASTATIN [Concomitant]
     Active Substance: SIMVASTATIN
     Dosage: STRENGTH: 20 MG, EFG, 28 TABLETS
     Route: 048
     Dates: start: 2018

REACTIONS (4)
  - Hyperglycaemia [Recovering/Resolving]
  - Dizziness [Recovering/Resolving]
  - Anaemia [Recovering/Resolving]
  - Asthenia [Unknown]

NARRATIVE: CASE EVENT DATE: 20250717
